FAERS Safety Report 11972604 (Version 2)
Quarter: 2016Q1

REPORT INFORMATION
  Report Type: Other
  Country: MX (occurrence: MX)
  Receive Date: 20160128
  Receipt Date: 20160212
  Transmission Date: 20160526
  Serious: Yes (Hospitalization)
  Sender: FDA-Public Use
  Company Number: MX-SHIRE-MX201600802

PATIENT
  Age: 13 Year
  Sex: Male
  Weight: 25 kg

DRUGS (1)
  1. ELAPRASE [Suspect]
     Active Substance: IDURSULFASE
     Indication: MUCOPOLYSACCHARIDOSIS II
     Dosage: 12 MG (TWO VIALS), 1X/WEEK
     Route: 041
     Dates: start: 20130607

REACTIONS (8)
  - Infusion related reaction [Recovering/Resolving]
  - Tachycardia [Recovering/Resolving]
  - Face oedema [Recovering/Resolving]
  - Hyperhidrosis [Recovering/Resolving]
  - Rash [Recovering/Resolving]
  - Bronchospasm [Recovering/Resolving]
  - Hyperthermia [Recovering/Resolving]
  - Pyrexia [Recovering/Resolving]

NARRATIVE: CASE EVENT DATE: 20160116
